FAERS Safety Report 4467015-9 (Version None)
Quarter: 2004Q3

REPORT INFORMATION
  Report Type: 
  Country: None (occurrence: None)
  Receive Date: 20040929
  Receipt Date: 20040929
  Transmission Date: 20050211
  Serious: No
  Sender: FDA-Public Use
  Company Number: None

PATIENT
  Age: 49 Year
  Sex: Male
  Weight: 83.9154 kg

DRUGS (2)
  1. KETEK [Suspect]
     Indication: ACUTE SINUSITIS
     Dosage: 2 TABS PO  ONCE A   ORAL
     Route: 048
     Dates: start: 20040923, end: 20040927
  2. MEDROL [Concomitant]

REACTIONS (2)
  - NAUSEA [None]
  - VOMITING [None]
